FAERS Safety Report 11212436 (Version 2)
Quarter: 2015Q3

REPORT INFORMATION
  Report Type: Report from Study
  Country: US (occurrence: US)
  Receive Date: 20150623
  Receipt Date: 20150721
  Transmission Date: 20151125
  Serious: Yes (Hospitalization, Other)
  Sender: FDA-Public Use
  Company Number: US-BAYER-2015-182499

PATIENT
  Age: 82 Year
  Sex: Male

DRUGS (9)
  1. TAMSULOSIN [Concomitant]
     Active Substance: TAMSULOSIN
     Dosage: 0.4 MG, UNK
  2. STIVARGA [Suspect]
     Active Substance: REGORAFENIB
     Dosage: 120 MG, QD
     Route: 048
  3. LATANOPROST. [Concomitant]
     Active Substance: LATANOPROST
  4. LEVOTHYROXINE. [Concomitant]
     Active Substance: LEVOTHYROXINE
     Dosage: 50 ?G, UNK
  5. STIVARGA [Suspect]
     Active Substance: REGORAFENIB
     Dosage: 4 TABLETS DAILY
     Route: 048
     Dates: start: 20150422
  6. OXYCODONE/APAP [Concomitant]
     Active Substance: ACETAMINOPHEN\OXYCODONE HYDROCHLORIDE
     Dosage: 5-352 MG
  7. ATORVASTATIN [Concomitant]
     Active Substance: ATORVASTATIN
     Dosage: 20 MG, UNK
  8. AMIODARONE [Concomitant]
     Active Substance: AMIODARONE
     Dosage: 200 MG, UNK
  9. STIVARGA [Suspect]
     Active Substance: REGORAFENIB
     Dosage: 160 MG, QD (4 TABLETS EVERY DAY)
     Route: 048

REACTIONS (11)
  - Haematochezia [None]
  - Decreased appetite [Not Recovered/Not Resolved]
  - Syncope [None]
  - Infection [None]
  - Epigastric discomfort [None]
  - Decreased appetite [None]
  - Nausea [None]
  - Peripheral swelling [Not Recovered/Not Resolved]
  - Asthenia [Not Recovered/Not Resolved]
  - Abdominal distension [Not Recovered/Not Resolved]
  - Blood pressure increased [Not Recovered/Not Resolved]

NARRATIVE: CASE EVENT DATE: 20150426
